FAERS Safety Report 5224726-5 (Version None)
Quarter: 2007Q1

REPORT INFORMATION
  Report Type: 
  Country: None (occurrence: None)
  Receive Date: 20070131
  Receipt Date: 20070124
  Transmission Date: 20070707
  Serious: Yes (Hospitalization)
  Sender: FDA-Public Use
  Company Number: HQWYE432324JAN07

PATIENT
  Age: 82 Year
  Sex: Male

DRUGS (1)
  1. CORDARONE [Suspect]
     Indication: ATRIAL FIBRILLATION
     Dosage: 200 MG (FREQUENCY UNSPECIFIED)
     Route: 048
     Dates: end: 20061109

REACTIONS (2)
  - HYPERTHYROIDISM [None]
  - LEFT VENTRICULAR FAILURE [None]
